FAERS Safety Report 5007164-X (Version None)
Quarter: 2006Q1

REPORT INFORMATION
  Report Type: 
  Country: None (occurrence: None)
  Receive Date: 20060327
  Receipt Date: 20051214
  Transmission Date: 20060701
  Serious: Yes (Other)
  Sender: FDA-Public Use
  Company Number: 220380

PATIENT
  Age: 50 Year
  Sex: Female

DRUGS (1)
  1. AVASTIN [Suspect]
     Indication: COLON CANCER

REACTIONS (4)
  - GINGIVAL BLEEDING [None]
  - GINGIVAL SWELLING [None]
  - LIP HAEMORRHAGE [None]
  - SWELLING FACE [None]
